FAERS Safety Report 18922746 (Version 4)
Quarter: 2021Q3

REPORT INFORMATION
  Report Type: Spontaneous
  Country: JP (occurrence: US)
  Receive Date: 20210222
  Receipt Date: 20210722
  Transmission Date: 20211014
  Serious: Yes (Life-Threatening)
  Sender: FDA-Public Use
  Company Number: US-CELGENEUS-USA-20210204631

PATIENT
  Age: 75 Year
  Sex: Male
  Weight: 53.7 kg

DRUGS (14)
  1. GRANISETRON [Concomitant]
     Active Substance: GRANISETRON
     Indication: PRODUCT USED FOR UNKNOWN INDICATION
     Dosage: 1 MILLIGRAM
     Route: 042
     Dates: start: 20181030, end: 20181211
  2. GEMCITABINE. [Suspect]
     Active Substance: GEMCITABINE
     Indication: PANCREATIC CARCINOMA
     Route: 041
     Dates: start: 20150401, end: 20190331
  3. FOLFIRINOX [Concomitant]
     Active Substance: FLUOROURACIL\IRINOTECAN\LEUCOVORIN\OXALIPLATIN
     Indication: PANCREATIC CARCINOMA
     Route: 065
     Dates: start: 20150104, end: 20190331
  4. LEVOFLOXACIN HEMIHYDRATE [Concomitant]
     Active Substance: LEVOFLOXACIN
     Indication: PRODUCT USED FOR UNKNOWN INDICATION
     Route: 048
     Dates: start: 20181230
  5. ABRAXANE [Suspect]
     Active Substance: PACLITAXEL
     Dosage: 134 MILLIGRAM
     Route: 041
     Dates: start: 20181030
  6. GEMCITABINE. [Suspect]
     Active Substance: GEMCITABINE
     Dosage: 1070 MILLIGRAM
     Route: 041
     Dates: start: 20181030
  7. TAZOBACTAM/PIPERACILIN [Concomitant]
     Indication: PRODUCT USED FOR UNKNOWN INDICATION
     Route: 065
     Dates: start: 20181224
  8. FILGRASTIM [Concomitant]
     Active Substance: FILGRASTIM
     Indication: PRODUCT USED FOR UNKNOWN INDICATION
     Dosage: 75 MICROGRAM
     Route: 065
     Dates: start: 20181218, end: 20181221
  9. CANCIDAS [Concomitant]
     Active Substance: CASPOFUNGIN ACETATE
     Indication: PRODUCT USED FOR UNKNOWN INDICATION
     Route: 041
     Dates: start: 20181224, end: 20181230
  10. ABRAXANE [Suspect]
     Active Substance: PACLITAXEL
     Dosage: 70% DOSE/DAY
     Route: 041
     Dates: start: 20181211, end: 20181218
  11. DEXART [Concomitant]
     Active Substance: DEXAMETHASONE SODIUM PHOSPHATE
     Indication: PRODUCT USED FOR UNKNOWN INDICATION
     Dosage: 6.6 MILLIGRAM
     Route: 042
     Dates: start: 20181030, end: 20181211
  12. ABRAXANE [Suspect]
     Active Substance: PACLITAXEL
     Indication: PANCREATIC CARCINOMA
     Route: 041
     Dates: start: 20150401, end: 20190331
  13. GEMCITABINE. [Suspect]
     Active Substance: GEMCITABINE
     Dosage: 70% DOSE/DAY
     Route: 041
     Dates: start: 20181211, end: 20181218
  14. CEFEPIME [Concomitant]
     Active Substance: CEFEPIME HYDROCHLORIDE
     Indication: PRODUCT USED FOR UNKNOWN INDICATION
     Dosage: 4 GRAM
     Route: 065
     Dates: start: 20181218, end: 20181223

REACTIONS (1)
  - Febrile neutropenia [Recovered/Resolved]

NARRATIVE: CASE EVENT DATE: 20181218
